FAERS Safety Report 14617508 (Version 2)
Quarter: 2018Q1

REPORT INFORMATION
  Report Type: Spontaneous
  Country: US (occurrence: US)
  Receive Date: 20180309
  Receipt Date: 20180319
  Transmission Date: 20180509
  Serious: Yes (Hospitalization)
  Sender: FDA-Public Use
  Company Number: US-ELI_LILLY_AND_COMPANY-US201803002434

PATIENT
  Age: 12 Year
  Sex: Female

DRUGS (2)
  1. HUMALOG [Suspect]
     Active Substance: INSULIN LISPRO
     Dosage: UNK UNK, TID (8 TO 1 AT BREAKFAST AND LUNCH AND 10 TO 1 AT DINNER WITH 1 FOR EVERY 50 UNITS)
     Route: 065
  2. HUMALOG [Suspect]
     Active Substance: INSULIN LISPRO
     Indication: TYPE 1 DIABETES MELLITUS
     Dosage: UNK UNK, TID (8 TO 1 AT BREAKFAST AND LUNCH AND 10 TO 1 AT DINNER WITH 1 FOR EVERY 50 UNITS)
     Route: 065

REACTIONS (5)
  - Blood glucose increased [Recovering/Resolving]
  - Drug dose omission [Unknown]
  - Blood glucose increased [Recovered/Resolved]
  - Blood glucose increased [Recovered/Resolved]
  - Drug dose omission [Unknown]

NARRATIVE: CASE EVENT DATE: 201703
